FAERS Safety Report 14944459 (Version 1)
Quarter: 2018Q2

REPORT INFORMATION
  Report Type: Spontaneous
  Country: US (occurrence: US)
  Receive Date: 20180529
  Receipt Date: 20180529
  Transmission Date: 20180711
  Serious: No
  Sender: FDA-Public Use
  Company Number: US-ASTRAZENECA-2018SE66549

PATIENT
  Age: 3866 Day
  Sex: Male
  Weight: 44.5 kg

DRUGS (1)
  1. PULMICORT FLEXHALER [Suspect]
     Active Substance: BUDESONIDE
     Indication: ASTHMA
     Route: 055
     Dates: start: 201804

REACTIONS (3)
  - Intentional product misuse [Unknown]
  - Underdose [Unknown]
  - Wheezing [Unknown]

NARRATIVE: CASE EVENT DATE: 201804
